FAERS Safety Report 4318623-7 (Version None)
Quarter: 2004Q1

REPORT INFORMATION
  Report Type: 
  Country: None (occurrence: None)
  Receive Date: 20040315
  Receipt Date: 20040315
  Transmission Date: 20041129
  Serious: No
  Sender: FDA-Public Use
  Company Number: None

PATIENT
  Age: 70 Year
  Sex: Male
  Weight: 98.2 kg

DRUGS (4)
  1. CELEBREX [Suspect]
     Indication: PROSTATE CANCER
     Dosage: 400 MG PO BID
     Route: 048
     Dates: start: 20031117
  2. LIPITOR [Concomitant]
  3. NORVASC [Concomitant]
  4. ASPIRIN [Concomitant]

REACTIONS (1)
  - URINARY RETENTION [None]
